FAERS Safety Report 9742381 (Version 2)
Quarter: 2013Q4

REPORT INFORMATION
  Report Type: Report from Study
  Country: FR (occurrence: FR)
  Receive Date: 20131210
  Receipt Date: 20131210
  Transmission Date: 20140711
  Serious: Yes (Other)
  Sender: FDA-Public Use
  Company Number: FR-ALEXION PHARMACEUTICALS INC.-A201302842

PATIENT
  Age: 15 Year
  Sex: Female

DRUGS (2)
  1. SOLIRIS [Suspect]
     Indication: NEPHROPATHY
     Dosage: UNK
     Route: 042
     Dates: start: 201211
  2. SOLIRIS [Suspect]
     Indication: OFF LABEL USE

REACTIONS (5)
  - Pancreatitis [Recovered/Resolved]
  - Pulmonary oedema [Recovered/Resolved]
  - Cystitis haemorrhagic [Unknown]
  - Off label use [Unknown]
  - Haematuria [Unknown]
